FAERS Safety Report 11703600 (Version 2)
Quarter: 2024Q4

REPORT INFORMATION
  Report Type: Report from Study
  Country: US (occurrence: US)
  Receive Date: 20151105
  Receipt Date: 20241022
  Transmission Date: 20250115
  Serious: No
  Sender: MERCK
  Company Number: US-009507513-1511USA001738

PATIENT
  Sex: Female

DRUGS (8)
  1. BELSOMRA [Suspect]
     Active Substance: SUVOREXANT
     Indication: Insomnia
     Dosage: 15 MG, QD
     Route: 048
  2. BELSOMRA [Suspect]
     Active Substance: SUVOREXANT
     Indication: Sleep disorder
     Dosage: 20 MILLIGRAM, HS (1 TABLET AT NIGHT)
     Route: 048
  3. BELSOMRA [Suspect]
     Active Substance: SUVOREXANT
     Indication: Post-traumatic stress disorder
     Dosage: 20 MILLIGRAM NIGHTLY
     Route: 048
     Dates: start: 2014, end: 20210809
  4. BELSOMRA [Suspect]
     Active Substance: SUVOREXANT
     Dosage: 20 MILLIGRAM, QD
     Route: 048
     Dates: end: 20231231
  5. BELSOMRA [Suspect]
     Active Substance: SUVOREXANT
     Dosage: 20 MILLIGRAM NIGHTLY
     Route: 048
     Dates: start: 20210825
  6. BELSOMRA [Suspect]
     Active Substance: SUVOREXANT
     Dosage: 1 TABLET DAILY
     Route: 048
  7. BENADRYL [Concomitant]
     Active Substance: DIPHENHYDRAMINE HYDROCHLORIDE
     Dosage: ^2-3^ NIGHTLY
  8. QUININE [Concomitant]
     Active Substance: QUININE
     Dosage: ^2-3^ NIGHTLY

REACTIONS (23)
  - Drug ineffective [Recovered/Resolved]
  - Product dose omission issue [Unknown]
  - Product dose omission issue [Recovered/Resolved]
  - Ocular hyperaemia [Unknown]
  - Eye pain [Unknown]
  - Dry eye [Unknown]
  - Insomnia [Unknown]
  - Ill-defined disorder [Not Recovered/Not Resolved]
  - Stress [Not Recovered/Not Resolved]
  - Panic attack [Not Recovered/Not Resolved]
  - Migraine [Not Recovered/Not Resolved]
  - Movement disorder [Recovering/Resolving]
  - Product dose omission issue [Recovered/Resolved]
  - Insomnia [Recovering/Resolving]
  - Dizziness [Recovering/Resolving]
  - Fatigue [Recovering/Resolving]
  - Product use issue [Unknown]
  - Product dose omission issue [Unknown]
  - Product dose omission issue [Unknown]
  - Agitation [Unknown]
  - Irritability [Unknown]
  - Drug ineffective [Unknown]
  - Product dose omission issue [Unknown]

NARRATIVE: CASE EVENT DATE: 20190101
